FAERS Safety Report 5496448-7 (Version None)
Quarter: 2007Q4

REPORT INFORMATION
  Report Type: 
  Country: None (occurrence: None)
  Receive Date: 20071023
  Receipt Date: 20071023
  Transmission Date: 20080405
  Serious: Yes (Other)
  Sender: FDA-Public Use
  Company Number: None

PATIENT
  Age: 19 Year
  Sex: Female
  Weight: 63.5036 kg

DRUGS (1)
  1. CEFTRIAXONE [Suspect]
     Indication: CYSTITIS
     Dosage: 2 G IVPB X 1 DOSE
     Dates: start: 20071021

REACTIONS (2)
  - INFUSION RELATED REACTION [None]
  - RASH PRURITIC [None]
